FAERS Safety Report 16344014 (Version 2)
Quarter: 2019Q2

REPORT INFORMATION
  Report Type: Spontaneous
  Country: US (occurrence: US)
  Receive Date: 20190522
  Receipt Date: 20190603
  Transmission Date: 20190711
  Serious: Yes (Hospitalization)
  Sender: FDA-Public Use
  Company Number: US-PFIZER INC-2019213032

PATIENT
  Age: 11 Year
  Sex: Male

DRUGS (2)
  1. GENOTROPIN [Suspect]
     Active Substance: SOMATROPIN
     Indication: GROWTH HORMONE DEFICIENCY
     Dosage: UNK
     Dates: start: 2018, end: 20180510
  2. GENOTROPIN [Suspect]
     Active Substance: SOMATROPIN
     Indication: HYPOGLYCAEMIA
     Dosage: 1.1 MG, DAILY
     Route: 058
     Dates: start: 200903, end: 201505

REACTIONS (1)
  - Blood glucose increased [Recovered/Resolved]

NARRATIVE: CASE EVENT DATE: 201505
